FAERS Safety Report 20243843 (Version 1)
Quarter: 2021Q4

REPORT INFORMATION
  Report Type: Spontaneous
  Country: None (occurrence: GB)
  Receive Date: 20211228
  Receipt Date: 20211228
  Transmission Date: 20220303
  Serious: Yes (Disabling)
  Sender: FDA-Public Use
  Company Number: GB-Ascend Therapeutics US, LLC-2123443

PATIENT
  Age: 70 Year
  Sex: Female
  Weight: 60.32 kg

DRUGS (10)
  1. ESTROGEL [Suspect]
     Active Substance: ESTRADIOL
     Indication: Product used for unknown indication
     Route: 065
     Dates: start: 20211106, end: 20211211
  2. ESTROGEL [Suspect]
     Active Substance: ESTRADIOL
  3. ESTRADIOL [Suspect]
     Active Substance: ESTRADIOL
     Route: 065
     Dates: start: 20211106, end: 20211211
  4. ASPIRIN COATED(ACETYLSALICYLIC ACID) [Concomitant]
     Route: 065
  5. BACLOFEN [Concomitant]
     Active Substance: BACLOFEN
     Route: 065
  6. BETMIGA(MIRABEGRON) [Concomitant]
     Route: 065
  7. FISH OIL CONCENTRATE(FISH OIL) [Concomitant]
     Route: 065
  8. MEZAVANT XL(MESALAZINE) [Concomitant]
     Route: 065
  9. OMEPRAZOLE [Concomitant]
     Active Substance: OMEPRAZOLE
     Route: 065
  10. STATIN(NYSTATIN) [Concomitant]
     Route: 065

REACTIONS (7)
  - Menopausal symptoms [Not Recovered/Not Resolved]
  - Anxiety [Not Recovered/Not Resolved]
  - Night sweats [Not Recovered/Not Resolved]
  - Sleep disorder [Not Recovered/Not Resolved]
  - Depressed mood [Not Recovered/Not Resolved]
  - Product formulation issue [Not Recovered/Not Resolved]
  - Drug ineffective [Not Recovered/Not Resolved]

NARRATIVE: CASE EVENT DATE: 20211106
